FAERS Safety Report 4753973-1 (Version None)
Quarter: 2005Q3

REPORT INFORMATION
  Report Type: 
  Country: None (occurrence: None)
  Receive Date: 20050826
  Receipt Date: 20050812
  Transmission Date: 20060218
  Serious: Yes (Hospitalization)
  Sender: FDA-Public Use
  Company Number: 2005114511

PATIENT
  Sex: Female

DRUGS (4)
  1. DEPO-MEDROL [Suspect]
     Indication: ILL-DEFINED DISORDER
     Dosage: 120 MG, INTRAVENOUS
     Route: 042
     Dates: start: 20050812
  2. FENTANYL [Concomitant]
  3. MIDAZOLAM HCL [Concomitant]
  4. DEXAMETHASONE [Concomitant]

REACTIONS (1)
  - WRONG DRUG ADMINISTERED [None]
